FAERS Safety Report 9785050 (Version 1)
Quarter: 2013Q4

REPORT INFORMATION
  Report Type: Spontaneous
  Country: DE (occurrence: DE)
  Receive Date: 20131227
  Receipt Date: 20131227
  Transmission Date: 20140711
  Serious: Yes (Hospitalization, Congenital Anomaly, Other)
  Sender: FDA-Public Use
  Company Number: DE-ASTRAZENECA-2013SE92759

PATIENT
  Age: 1 Day
  Sex: Male
  Weight: 2.8 kg

DRUGS (4)
  1. SEROQUEL [Suspect]
     Route: 064
  2. VENLAFAXINE [Suspect]
     Route: 064
  3. VENLAFAXINE [Suspect]
     Route: 064
  4. BUPROPION [Suspect]
     Route: 064

REACTIONS (5)
  - Neonatal respiratory distress syndrome [Recovered/Resolved]
  - Feeding disorder neonatal [Recovered/Resolved]
  - Small for dates baby [Recovering/Resolving]
  - Oxygen saturation decreased [Recovered/Resolved]
  - Atrial septal defect [Unknown]
